FAERS Safety Report 20433761 (Version 1)
Quarter: 2022Q1

REPORT INFORMATION
  Report Type: Spontaneous
  Country: US (occurrence: US)
  Receive Date: 20220205
  Receipt Date: 20220205
  Transmission Date: 20220424
  Serious: Yes (Hospitalization, Other)
  Sender: FDA-Public Use
  Company Number: US-SA-SAC20220202001250

PATIENT
  Sex: Male

DRUGS (1)
  1. PLAVIX [Suspect]
     Active Substance: CLOPIDOGREL BISULFATE
     Indication: Product used for unknown indication

REACTIONS (6)
  - Thrombosis [Unknown]
  - Fall [Unknown]
  - Pain [Unknown]
  - COVID-19 [Unknown]
  - Contusion [Unknown]
  - Haematoma [Unknown]
